FAERS Safety Report 10024515 (Version 1)
Quarter: 2014Q1

REPORT INFORMATION
  Report Type: Spontaneous
  Country: US (occurrence: US)
  Receive Date: 20140320
  Receipt Date: 20140320
  Transmission Date: 20141002
  Serious: Yes (Other)
  Sender: FDA-Public Use
  Company Number: US-ENDO PHARMACEUTICALS INC.-OPCR20140027

PATIENT
  Sex: 0

DRUGS (2)
  1. OPANA ER [Suspect]
     Indication: PAIN
     Dosage: UNK
     Route: 065
  2. MORPHINE SULFATE ER [Suspect]
     Indication: BREAKTHROUGH PAIN
     Dosage: UNK
     Route: 065

REACTIONS (1)
  - Drug screen positive [Unknown]
